FAERS Safety Report 6523505-6 (Version None)
Quarter: 2009Q4

REPORT INFORMATION
  Report Type: 
  Country: None (occurrence: None)
  Receive Date: 20091231
  Receipt Date: 20091221
  Transmission Date: 20100525
  Serious: Yes (Hospitalization, Other)
  Sender: FDA-Public Use
  Company Number: PHHY2009GB51776

PATIENT
  Sex: Male

DRUGS (1)
  1. CLOZARIL [Suspect]
     Indication: SCHIZOPHRENIA
     Dosage: UNK
     Route: 048
     Dates: start: 20080414

REACTIONS (5)
  - DYSPNOEA [None]
  - PALLOR [None]
  - SYNCOPE [None]
  - UROSEPSIS [None]
  - WEIGHT DECREASED [None]
